FAERS Safety Report 21530717 (Version 10)
Quarter: 2024Q4

REPORT INFORMATION
  Report Type: Spontaneous
  Country: PT (occurrence: PT)
  Receive Date: 20221031
  Receipt Date: 20241230
  Transmission Date: 20250115
  Serious: Yes (Hospitalization, Other)
  Sender: MYLAN
  Company Number: PT-MYLANLABS-2022M1118545

PATIENT
  Age: 54 Year
  Sex: Female

DRUGS (5)
  1. ATORVASTATIN [Suspect]
     Active Substance: ATORVASTATIN
     Indication: Type IIa hyperlipidaemia
     Dosage: 80 MILLIGRAM, QD
     Route: 048
     Dates: start: 202007
  2. EZETIMIBE [Suspect]
     Active Substance: EZETIMIBE
     Indication: Type IIa hyperlipidaemia
     Dosage: 10 MILLIGRAM, QD
     Route: 048
     Dates: start: 202007
  3. EDOXABAN TOSYLATE [Suspect]
     Active Substance: EDOXABAN TOSYLATE
     Indication: Product used for unknown indication
     Dosage: 60 MILLIGRAM, QD
     Route: 048
     Dates: start: 202007
  4. EDOXABAN [Concomitant]
     Active Substance: EDOXABAN
     Indication: Product used for unknown indication
     Dosage: 60 MILLIGRAM, QD
     Route: 048
     Dates: start: 202007
  5. BISOPROLOL [Concomitant]
     Active Substance: BISOPROLOL
     Dosage: UNK
     Route: 048

REACTIONS (15)
  - Anuria [Recovered/Resolved]
  - Gait disturbance [Recovered/Resolved]
  - Gingival bleeding [Recovered/Resolved]
  - Acute kidney injury [Recovering/Resolving]
  - Coagulopathy [Recovered/Resolved]
  - Hepatic failure [Recovering/Resolving]
  - Hyperbilirubinaemia [Recovered/Resolved]
  - Acute on chronic liver failure [Recovered/Resolved]
  - Acute hepatic failure [Recovered/Resolved]
  - Thrombocytopenia [Recovered/Resolved]
  - Cholestasis [Recovered/Resolved]
  - Rhabdomyolysis [Recovered/Resolved]
  - Hepatic steatosis [Unknown]
  - Myalgia [Unknown]
  - Mucosal haemorrhage [Unknown]

NARRATIVE: CASE EVENT DATE: 20200901
